FAERS Safety Report 19301133 (Version 3)
Quarter: 2023Q2

REPORT INFORMATION
  Report Type: Report from Study
  Country: CN (occurrence: CN)
  Receive Date: 20210524
  Receipt Date: 20230613
  Transmission Date: 20230722
  Serious: Yes (Hospitalization)
  Sender: FDA-Public Use
  Company Number: CN-MACROGENICS-2021000124

PATIENT
  Age: 72 Year
  Sex: Female
  Weight: 72 kg

DRUGS (28)
  1. MARGETUXIMAB [Suspect]
     Active Substance: MARGETUXIMAB
     Indication: Gastric cancer
     Dosage: 15 MILLIGRAM/KILOGRAM, Q3WEEKS
     Route: 042
     Dates: start: 20210119, end: 20210119
  2. MARGETUXIMAB [Suspect]
     Active Substance: MARGETUXIMAB
     Dosage: 15 MILLIGRAM/KILOGRAM, Q3WEEKS
     Route: 042
     Dates: start: 20210302, end: 20210302
  3. TEBOTELIMAB [Suspect]
     Active Substance: TEBOTELIMAB
     Indication: Gastric cancer
     Dosage: 600 MILLIGRAM, Q3WEEKS
     Route: 042
     Dates: start: 20210119, end: 20210119
  4. TEBOTELIMAB [Suspect]
     Active Substance: TEBOTELIMAB
     Dosage: 600 MILLIGRAM, Q3WEEKS
     Route: 042
     Dates: start: 20210302, end: 20210302
  5. OXALIPLATIN [Concomitant]
     Active Substance: OXALIPLATIN
     Indication: Gastric cancer
     Dosage: 130 MILLIGRAM/SQ METER
     Route: 042
     Dates: start: 20210119, end: 20210119
  6. OXALIPLATIN [Concomitant]
     Active Substance: OXALIPLATIN
     Dosage: 130 MILLIGRAM/SQ METER
     Route: 042
     Dates: start: 20210302, end: 20210302
  7. CAPECITABINE [Concomitant]
     Active Substance: CAPECITABINE
     Indication: Gastric cancer
     Dosage: 2000 MILLIGRAM/SQ METER
     Route: 048
     Dates: start: 20210119, end: 20210202
  8. CAPECITABINE [Concomitant]
     Active Substance: CAPECITABINE
     Dosage: 2000 MILLIGRAM/SQ METER
     Route: 048
     Dates: start: 20210303, end: 20210316
  9. INDAPAMIDE [Concomitant]
     Active Substance: INDAPAMIDE
     Indication: Hypertension
     Dosage: 2.5 MILLIGRAM, QD
     Route: 048
     Dates: start: 20100101
  10. BETAHISTINE MESILATE [Concomitant]
     Active Substance: BETAHISTINE MESILATE
     Indication: Dizziness
     Dosage: 10 MILLIGRAM, Q24HR
     Route: 048
     Dates: start: 20210303, end: 20210303
  11. ESOMEPRAZOLE SODIUM [Concomitant]
     Active Substance: ESOMEPRAZOLE SODIUM
     Indication: Premedication
     Dosage: 40 MILLIGRAM, QD
     Route: 042
     Dates: start: 20210209, end: 20210209
  12. ESOMEPRAZOLE SODIUM [Concomitant]
     Active Substance: ESOMEPRAZOLE SODIUM
     Indication: Gastrooesophageal reflux disease
     Dosage: 40 MILLIGRAM, QD
     Route: 042
     Dates: start: 20210302, end: 20210302
  13. ESOMEPRAZOLE SODIUM [Concomitant]
     Active Substance: ESOMEPRAZOLE SODIUM
     Dosage: 20 MILLIGRAM, BID
     Route: 048
     Dates: start: 20210305, end: 20210316
  14. POTASSIUM CHLORIDE [Concomitant]
     Active Substance: POTASSIUM CHLORIDE
     Indication: Hypokalaemia
     Dosage: 1 GRAM, TID
     Route: 048
     Dates: start: 20210119, end: 20210209
  15. POTASSIUM CHLORIDE [Concomitant]
     Active Substance: POTASSIUM CHLORIDE
     Indication: Mineral supplementation
     Dosage: 10 MILLILITER, QD
     Route: 042
     Dates: start: 20210302, end: 20210302
  16. POTASSIUM CHLORIDE [Concomitant]
     Active Substance: POTASSIUM CHLORIDE
     Dosage: 1 GRAM, TID
     Route: 048
     Dates: start: 20210302, end: 20210312
  17. POTASSIUM CHLORIDE [Concomitant]
     Active Substance: POTASSIUM CHLORIDE
     Dosage: 20 MILLILITER, QD
     Route: 048
     Dates: start: 20210303, end: 20210303
  18. POTASSIUM CHLORIDE [Concomitant]
     Active Substance: POTASSIUM CHLORIDE
     Dosage: 30 MILLILITER, QD
     Route: 042
     Dates: start: 20210303, end: 20210303
  19. APREPITANT [Concomitant]
     Active Substance: APREPITANT
     Indication: Premedication
     Dosage: 125 MILLIGRAM, QD
     Route: 048
     Dates: start: 20210209, end: 20210209
  20. APREPITANT [Concomitant]
     Active Substance: APREPITANT
     Dosage: 80 MILLIGRAM, Q24HR
     Route: 048
     Dates: start: 20210210, end: 20210211
  21. APREPITANT [Concomitant]
     Active Substance: APREPITANT
     Dosage: 125 MILLIGRAM, Q24HR
     Route: 065
     Dates: start: 20210302, end: 20210302
  22. DIPHENHYDRAMINE HYDROCHLORIDE [Concomitant]
     Active Substance: DIPHENHYDRAMINE HYDROCHLORIDE
     Indication: Premedication
     Dosage: 40 MILLIGRAM, QD
     Route: 030
     Dates: start: 20210209, end: 20210209
  23. DIPHENHYDRAMINE HYDROCHLORIDE [Concomitant]
     Active Substance: DIPHENHYDRAMINE HYDROCHLORIDE
     Dosage: 40 MILLIGRAM, QD
     Route: 030
     Dates: start: 20210302, end: 20210302
  24. FAMOTIDINE [Concomitant]
     Active Substance: FAMOTIDINE
     Indication: Premedication
     Dosage: 40 MILLIGRAM, QD
     Route: 042
     Dates: start: 20210209, end: 20210209
  25. FAMOTIDINE [Concomitant]
     Active Substance: FAMOTIDINE
     Dosage: 40 MILLIGRAM, QD
     Route: 042
     Dates: start: 20210302, end: 20210302
  26. PALONOSETRON HYDROCHLORIDE [Concomitant]
     Active Substance: PALONOSETRON HYDROCHLORIDE
     Indication: Premedication
     Dosage: 0.25 MILLIGRAM, QD
     Route: 042
     Dates: start: 20210209, end: 20210209
  27. PALONOSETRON HYDROCHLORIDE [Concomitant]
     Active Substance: PALONOSETRON HYDROCHLORIDE
     Dosage: 0.25 MILLIGRAM, QD
     Route: 042
     Dates: start: 20210302, end: 20210302
  28. GEFARNATE [Concomitant]
     Active Substance: GEFARNATE
     Indication: Gastrooesophageal reflux disease
     Dosage: 100 MILLIGRAM, Q24HR
     Route: 048
     Dates: start: 20210305, end: 20210305

REACTIONS (1)
  - Immune-mediated lung disease [Recovered/Resolved]

NARRATIVE: CASE EVENT DATE: 20210303
